FAERS Safety Report 9346792 (Version 3)
Quarter: 2013Q4

REPORT INFORMATION
  Report Type: Spontaneous
  Country: US (occurrence: US)
  Receive Date: 20130613
  Receipt Date: 20131206
  Transmission Date: 20140711
  Serious: Yes (Hospitalization)
  Sender: FDA-Public Use
  Company Number: US-B.I. PHARMACEUTICALS,INC./RIDGEFIELD-2013-BI-16396BP

PATIENT
  Age: 81 Year
  Sex: Male
  Weight: 65.77 kg

DRUGS (4)
  1. PRADAXA [Suspect]
     Indication: ATRIAL FIBRILLATION
     Dosage: 300 MG
     Dates: start: 20101216, end: 20120313
  2. DILTIAZEM XR [Concomitant]
  3. ZOLOFT [Concomitant]
     Dosage: 25 MG
     Route: 048
  4. VALIUM [Concomitant]

REACTIONS (4)
  - Subdural haematoma [Unknown]
  - Extradural haematoma [Unknown]
  - Coagulopathy [Unknown]
  - Fall [Unknown]
